FAERS Safety Report 25134787 (Version 1)
Quarter: 2025Q1

REPORT INFORMATION
  Report Type: Spontaneous
  Country: US (occurrence: None)
  Receive Date: 20250327
  Receipt Date: 20250327
  Transmission Date: 20250409
  Serious: Yes (Other)
  Sender: FDA-CTU
  Company Number: None

PATIENT
  Age: 59 Year
  Sex: Female
  Weight: 99 kg

DRUGS (9)
  1. ZEPBOUND [Suspect]
     Active Substance: TIRZEPATIDE
     Indication: Weight decreased
     Route: 058
     Dates: start: 20241202, end: 20250326
  2. Vitamin D3 50 mcg [Concomitant]
  3. CITALOPRAM [Concomitant]
     Active Substance: CITALOPRAM
  4. Vitamin B12 30000 mcg [Concomitant]
  5. VOLTAREN [Concomitant]
     Active Substance: DICLOFENAC SODIUM
  6. FAMOTIDINE [Concomitant]
     Active Substance: FAMOTIDINE
  7. Ferrous Sulfate 325 mg [Concomitant]
  8. HYDROCHLOROTHIAZIDE\LOSARTAN POTASSIUM [Concomitant]
     Active Substance: HYDROCHLOROTHIAZIDE\LOSARTAN POTASSIUM
  9. Mometasone ointment 0.1% [Concomitant]

REACTIONS (3)
  - Sinus congestion [None]
  - Laryngitis [None]
  - Vocal cord polyp [None]
